FAERS Safety Report 4318280-X (Version None)
Quarter: 2004Q1

REPORT INFORMATION
  Report Type: 
  Country: None (occurrence: None)
  Receive Date: 20040312
  Receipt Date: 20040303
  Transmission Date: 20041129
  Serious: Yes (Disabling)
  Sender: FDA-Public Use
  Company Number: HQ6246717JAN2003

PATIENT
  Age: 50 Year
  Sex: Male

DRUGS (1)
  1. DIMETAPP [Suspect]
     Indication: NASOPHARYNGITIS
     Dosage: ORAL
     Route: 048
     Dates: start: 20000213

REACTIONS (1)
  - CEREBROVASCULAR ACCIDENT [None]
